FAERS Safety Report 19188814 (Version 5)
Quarter: 2021Q3

REPORT INFORMATION
  Report Type: Report from Study
  Country: US (occurrence: US)
  Receive Date: 20210428
  Receipt Date: 20210825
  Transmission Date: 20211014
  Serious: Yes (Hospitalization)
  Sender: FDA-Public Use
  Company Number: US-B.I. PHARMACEUTICALS,INC./RIDGEFIELD-2021-BI-099123

PATIENT
  Sex: Female

DRUGS (2)
  1. OFEV [Suspect]
     Active Substance: NINTEDANIB
     Indication: IDIOPATHIC PULMONARY FIBROSIS
     Dosage: OFEV DOSE 300MG DAILY
     Route: 048
     Dates: start: 20191211, end: 202104
  2. OFEV [Suspect]
     Active Substance: NINTEDANIB
     Dosage: 200 MG DAILY
     Route: 048

REACTIONS (6)
  - Haemorrhoids [Recovered/Resolved]
  - Diverticulitis [Recovered/Resolved]
  - Diverticulitis [Unknown]
  - Rectal haemorrhage [Unknown]
  - Limb discomfort [Unknown]
  - Diarrhoea [Unknown]
